FAERS Safety Report 8721442 (Version 2)
Quarter: 2012Q4

REPORT INFORMATION
  Report Type: 
  Country: US (occurrence: US)
  Receive Date: 20120813
  Receipt Date: 20120910
  Transmission Date: 20130627
  Serious: Yes (Hospitalization)
  Sender: FDA-Public Use
  Company Number: CHPA2012US017691

PATIENT

DRUGS (1)
  1. EXCEDRIN EXTRA STRENGTH [Suspect]
     Dosage: 2 DF, ONCE/SINGLE
     Route: 048

REACTIONS (3)
  - Hypertension [Unknown]
  - Palpitations [Unknown]
  - Product quality issue [None]
